FAERS Safety Report 5290635-9 (Version None)
Quarter: 2007Q2

REPORT INFORMATION
  Report Type: 
  Country: None (occurrence: None)
  Receive Date: 20070409
  Receipt Date: 20070405
  Transmission Date: 20071010
  Serious: Yes (Other)
  Sender: FDA-Public Use
  Company Number: CA-GLAXOSMITHKLINE-A0643434A

PATIENT
  Age: 63 Year
  Sex: Male

DRUGS (1)
  1. ADVAIR DISKUS 100/50 [Suspect]
     Indication: DRUG USE FOR UNKNOWN INDICATION
     Route: 055

REACTIONS (2)
  - DRUG INEFFECTIVE [None]
  - PHARMACEUTICAL PRODUCT COMPLAINT [None]
